FAERS Safety Report 5010415-9 (Version None)
Quarter: 2006Q2

REPORT INFORMATION
  Report Type: 
  Country: None (occurrence: None)
  Receive Date: 20060525
  Receipt Date: 20060515
  Transmission Date: 20061013
  Serious: Yes (Other)
  Sender: FDA-Public Use
  Company Number: 2006UW09697

PATIENT
  Age: 58 Year
  Sex: Female
  Weight: 85.5 kg

DRUGS (1)
  1. PRILOSEC OTC [Suspect]
     Indication: DYSPEPSIA
     Route: 048
     Dates: start: 20060512, end: 20060512

REACTIONS (5)
  - ABDOMINAL PAIN UPPER [None]
  - DYSARTHRIA [None]
  - DYSPNOEA [None]
  - NAUSEA [None]
  - VOMITING [None]
